FAERS Safety Report 6500344-3 (Version None)
Quarter: 2009Q4

REPORT INFORMATION
  Report Type: 
  Country: None (occurrence: None)
  Receive Date: 20091216
  Receipt Date: 20091208
  Transmission Date: 20100525
  Serious: Yes (Death)
  Sender: FDA-Public Use
  Company Number: US-SANOFI-AVENTIS-2009SA004219

PATIENT
  Age: 41 Year
  Sex: Male
  Weight: 100.91 kg

DRUGS (7)
  1. MULTAQ [Suspect]
     Indication: ATRIAL FIBRILLATION
     Dosage: TOTAL OF 3 DOSES
     Route: 048
     Dates: start: 20091118, end: 20091119
  2. LASIX [Concomitant]
  3. POTASSIUM CHLORIDE [Concomitant]
  4. WARFARIN SODIUM [Concomitant]
     Dates: start: 20000401
  5. ATENOLOL [Concomitant]
     Dates: start: 20000401
  6. DIGOXIN [Concomitant]
     Indication: ATRIAL FIBRILLATION
     Dates: start: 20080401
  7. FENOFIBRATE [Concomitant]

REACTIONS (1)
  - CARDIAC ARREST [None]
